FAERS Safety Report 9079438 (Version 1)
Quarter: 2013Q1

REPORT INFORMATION
  Report Type: Spontaneous
  Country: FR (occurrence: FR)
  Receive Date: 20130130
  Receipt Date: 20130130
  Transmission Date: 20140127
  Serious: Yes (Hospitalization)
  Sender: FDA-Public Use
  Company Number: FR-ASTRAZENECA-2013SE04967

PATIENT
  Age: 982 Month
  Sex: Male
  Weight: 77 kg

DRUGS (8)
  1. INEXIUM [Suspect]
     Route: 048
     Dates: start: 20120320
  2. VIDAZA [Suspect]
     Dosage: 75 MG/M2, 140 MG/D DURING 7 DAYS
     Route: 042
     Dates: start: 20120315, end: 20120321
  3. EMEND [Suspect]
     Dates: start: 20120315, end: 20120319
  4. ZOPHREN [Suspect]
     Route: 042
     Dates: start: 20120315, end: 20120319
  5. ARANESP [Concomitant]
     Route: 058
  6. ATARAX [Concomitant]
     Route: 048
  7. VENOFER [Concomitant]
     Dates: start: 20120314, end: 20120316
  8. ZELITREX [Concomitant]

REACTIONS (1)
  - Renal failure acute [Recovered/Resolved with Sequelae]
